FAERS Safety Report 9331682 (Version 1)
Quarter: 2013Q2

REPORT INFORMATION
  Report Type: Spontaneous
  Country: US (occurrence: US)
  Receive Date: 20130605
  Receipt Date: 20130605
  Transmission Date: 20140414
  Serious: No
  Sender: FDA-Public Use
  Company Number: US-PFIZER INC-2013169284

PATIENT
  Age: 63 Year
  Sex: Female

DRUGS (3)
  1. XELJANZ [Suspect]
     Indication: RHEUMATOID ARTHRITIS
     Dosage: 5 MG, 2X/DAY
     Route: 048
  2. PREDNISONE [Concomitant]
     Dosage: 1 MG, UNK
  3. ZOFRAN [Concomitant]
     Dosage: 4 MG, UNK

REACTIONS (1)
  - Nausea [Unknown]
